FAERS Safety Report 15441777 (Version 1)
Quarter: 2018Q4

REPORT INFORMATION
  Report Type: Spontaneous
  Country: RO (occurrence: RO)
  Receive Date: 20180928
  Receipt Date: 20180928
  Transmission Date: 20190204
  Serious: Yes (Other)
  Sender: FDA-Public Use
  Company Number: RO-LPDUSPRD-20181759

PATIENT
  Age: 30 Year
  Sex: Female

DRUGS (6)
  1. CORTICOTHERAPY [Concomitant]
     Active Substance: CORTICOSTEROID NOS
     Dosage: TWO COURSES OF CORTICOTHERAPY
     Route: 065
  2. MALTOFER (IRON POLYMALTOSE) [Suspect]
     Active Substance: IRON POLYMALTOSE
     Dosage: UNKNOWN
     Route: 048
  3. FERINJECT [Suspect]
     Active Substance: FERRIC CARBOXYMALTOSE
     Dosage: UNKNOWN
     Route: 065
  4. MALTOFER FOL TABLETS [Suspect]
     Active Substance: FOLIC ACID\IRON POLYMALTOSE
     Dosage: UNKNOWN
     Route: 065
  5. VENOFER [Suspect]
     Active Substance: IRON SUCROSE
     Dosage: UNKNOWN
     Route: 065
  6. FERRUM HAUSMANN CAPSULES (FERROUS FUMARATE) [Suspect]
     Active Substance: FERROUS FUMARATE
     Dosage: UNKNOWN
     Route: 065

REACTIONS (1)
  - Metrorrhagia [Unknown]
